FAERS Safety Report 6666997-4 (Version None)
Quarter: 2010Q2

REPORT INFORMATION
  Report Type: 
  Country: None (occurrence: None)
  Receive Date: 20100405
  Receipt Date: 20100329
  Transmission Date: 20101027
  Serious: Yes (Hospitalization, Other)
  Sender: FDA-Public Use
  Company Number: US-ASTRAZENECA-2010SE13865

PATIENT
  Age: 63 Year
  Sex: Female
  Weight: 103.4 kg

DRUGS (13)
  1. SEROQUEL [Suspect]
     Indication: INSOMNIA
     Route: 048
     Dates: start: 20070101
  2. ATENOLOL [Concomitant]
     Route: 048
  3. OMEPRAZOLE [Concomitant]
     Route: 048
  4. ENALAPRIL MALEATE [Concomitant]
     Route: 048
  5. LOVASTATIN [Concomitant]
     Route: 048
  6. PRIMIDONE [Concomitant]
     Route: 048
  7. GLIPIZIDE [Concomitant]
     Route: 048
  8. FUROSEMIDE [Concomitant]
     Route: 048
  9. PREDNISONE TAB [Concomitant]
     Route: 048
  10. LEVOXYL [Concomitant]
     Route: 048
  11. NOVOLOG INSULIN PUMP [Concomitant]
  12. TARDIM PLUS [Concomitant]
     Dosage: DAILY
     Route: 048
  13. POTASSIUM [Concomitant]
     Route: 048

REACTIONS (7)
  - DIABETIC RETINOPATHY [None]
  - INFLUENZA LIKE ILLNESS [None]
  - MULTIPLE MYELOMA [None]
  - PLATELET COUNT DECREASED [None]
  - RED BLOOD CELL COUNT DECREASED [None]
  - TREMOR [None]
  - WHITE BLOOD CELL COUNT DECREASED [None]
